FAERS Safety Report 9191938 (Version 3)
Quarter: 2013Q3

REPORT INFORMATION
  Report Type: Spontaneous
  Country: US (occurrence: US)
  Receive Date: 20130327
  Receipt Date: 20130812
  Transmission Date: 20140515
  Serious: No
  Sender: FDA-Public Use
  Company Number: US-BIOGENIDEC-2013BI026576

PATIENT
  Age: 52 Year
  Sex: Female

DRUGS (1)
  1. TYSABRI [Suspect]
     Indication: MULTIPLE SCLEROSIS
     Route: 042
     Dates: start: 20100607, end: 20130528

REACTIONS (10)
  - Poor venous access [Recovered/Resolved]
  - Asthma [Recovered/Resolved]
  - Ear infection [Not Recovered/Not Resolved]
  - Rhinitis [Not Recovered/Not Resolved]
  - Pharyngitis [Not Recovered/Not Resolved]
  - Lower respiratory tract infection [Recovered/Resolved]
  - Respiratory tract infection [Recovered/Resolved]
  - Urinary tract infection [Recovered/Resolved]
  - Rash erythematous [Not Recovered/Not Resolved]
  - Sinusitis [Not Recovered/Not Resolved]
